FAERS Safety Report 5808880-X (Version None)
Quarter: 2008Q3

REPORT INFORMATION
  Report Type: 
  Country: None (occurrence: None)
  Receive Date: 20080714
  Receipt Date: 20080709
  Transmission Date: 20090109
  Serious: Yes (Disabling, Other)
  Sender: FDA-Public Use
  Company Number: CH-ASTRAZENECA-2008PK01471

PATIENT
  Age: 30214 Day
  Sex: Female
  Weight: 64 kg

DRUGS (1)
  1. SCANDICAIN [Suspect]
     Indication: VITRECTOMY
     Route: 056
     Dates: start: 20070212, end: 20070212

REACTIONS (1)
  - RETINAL ARTERY OCCLUSION [None]
